FAERS Safety Report 10794651 (Version 1)
Quarter: 2015Q1

REPORT INFORMATION
  Report Type: Report from Study
  Country: JP (occurrence: JP)
  Receive Date: 20150213
  Receipt Date: 20150213
  Transmission Date: 20150721
  Serious: Yes (Other)
  Sender: FDA-Public Use
  Company Number: JP-009507513-1310JPN001676

PATIENT
  Age: 1 Month
  Sex: Female

DRUGS (13)
  1. SOLU-CORTEF [Concomitant]
     Active Substance: HYDROCORTISONE SODIUM SUCCINATE
     Dosage: 1-2MG/ QD, DAILY DOSE UNKNOWN
     Route: 042
     Dates: start: 20130904, end: 20130907
  2. DEXTROSE. [Concomitant]
     Active Substance: DEXTROSE
     Indication: HYPOGLYCAEMIA
     Dosage: 12-39.6ML, QD
     Route: 042
     Dates: start: 20130828, end: 20130903
  3. SOLITA T-3G [Concomitant]
     Indication: HYPOGLYCAEMIA
     Dosage: 24 ML, 1 DAY
     Route: 042
     Dates: start: 20130912, end: 20130912
  4. DEXTROSE. [Concomitant]
     Active Substance: DEXTROSE
     Indication: HYPOGLYCAEMIA
     Dosage: DAILY DOSE UNKNOWN
     Route: 042
     Dates: start: 20130910, end: 20130911
  5. DIAZOXIDE CAPSULES 25 MG ^MSD^ [Suspect]
     Active Substance: DIAZOXIDE
     Dosage: 4.3 MG, TID
     Route: 048
     Dates: start: 20130911, end: 20131008
  6. SOLU-CORTEF [Concomitant]
     Active Substance: HYDROCORTISONE SODIUM SUCCINATE
     Indication: HYPOGLYCAEMIA
     Dosage: 2-5MG/QD
     Route: 042
     Dates: start: 20130829, end: 20130903
  7. DIAZOXIDE CAPSULES 25 MG ^MSD^ [Suspect]
     Active Substance: DIAZOXIDE
     Indication: HYPOGLYCAEMIA
     Dosage: 2.7 MG, TID
     Route: 048
     Dates: start: 20130904, end: 20130907
  8. DIAZOXIDE CAPSULES 25 MG ^MSD^ [Suspect]
     Active Substance: DIAZOXIDE
     Dosage: 3.3 MG, TID
     Route: 048
     Dates: start: 20130908, end: 20130910
  9. DEXTROSE. [Concomitant]
     Active Substance: DEXTROSE
     Dosage: 6-12ML, QD
     Route: 042
     Dates: start: 20130904, end: 20130909
  10. DEXTROSE. [Concomitant]
     Active Substance: DEXTROSE
     Indication: HYPOGLYCAEMIA
     Dosage: 4.8-8.64ML, QD
     Route: 042
     Dates: start: 20130904, end: 20130910
  11. DEXTROSE. [Concomitant]
     Active Substance: DEXTROSE
     Dosage: 50%,4.8-28.8ML/ DAY (DAILY DOSE UNKNOWN)
     Route: 042
     Dates: start: 20130824, end: 20130903
  12. DIAZOXIDE CAPSULES 25 MG ^MSD^ [Suspect]
     Active Substance: DIAZOXIDE
     Dosage: 3 MG, TID
     Route: 048
     Dates: start: 20131009, end: 20131015
  13. DIAZOXIDE CAPSULES 25 MG ^MSD^ [Suspect]
     Active Substance: DIAZOXIDE
     Dosage: 1.5 MG, TID
     Route: 048
     Dates: start: 20131016, end: 20131022

REACTIONS (3)
  - Oedema [Recovering/Resolving]
  - Neutrophil count decreased [Recovering/Resolving]
  - Hypertrichosis [Recovered/Resolved]

NARRATIVE: CASE EVENT DATE: 20130914
